FAERS Safety Report 5369660-5 (Version None)
Quarter: 2007Q2

REPORT INFORMATION
  Report Type: 
  Country: None (occurrence: None)
  Receive Date: 20070621
  Receipt Date: 20070608
  Transmission Date: 20071010
  Serious: Yes (Other)
  Sender: FDA-Public Use
  Company Number: 2007RR-07580

PATIENT
  Age: 35 Year
  Sex: Female

DRUGS (3)
  1. METFORMIN HYDROCHLORIDE [Suspect]
     Indication: DIABETES MELLITUS
     Dosage: 1G, BID, ORAL
     Route: 048
  2. CYPROTERONE [Concomitant]
  3. ESTROGENIC SUBSTANCE [Concomitant]

REACTIONS (1)
  - ALOPECIA [None]
